FAERS Safety Report 5385574-9 (Version None)
Quarter: 2007Q3

REPORT INFORMATION
  Report Type: 
  Country: None (occurrence: None)
  Receive Date: 20070712
  Receipt Date: 20070710
  Transmission Date: 20080115
  Serious: Yes (Hospitalization, Disabling)
  Sender: FDA-Public Use
  Company Number: US-MERCK-0705USA05249

PATIENT
  Age: 68 Year
  Sex: Female
  Weight: 145 kg

DRUGS (9)
  1. VYTORIN [Suspect]
     Indication: BLOOD CHOLESTEROL
     Route: 048
     Dates: start: 20051201, end: 20070501
  2. VYTORIN [Suspect]
     Route: 048
     Dates: start: 20051201, end: 20070501
  3. VYTORIN [Suspect]
     Indication: LIPIDS INCREASED
     Route: 048
     Dates: start: 20051201, end: 20070501
  4. VYTORIN [Suspect]
     Route: 048
     Dates: start: 20051201, end: 20070501
  5. PROZAC [Concomitant]
     Route: 065
  6. LORAZEPAM [Concomitant]
     Route: 065
  7. PRILOSEC [Concomitant]
     Route: 065
  8. ZYRTEC [Concomitant]
     Route: 065
  9. LEVOTHYROXINE SODIUM [Concomitant]
     Route: 065

REACTIONS (9)
  - ABDOMINAL PAIN UPPER [None]
  - BACK PAIN [None]
  - BARRETT'S OESOPHAGUS [None]
  - CHEST PAIN [None]
  - DIARRHOEA [None]
  - GASTRITIS [None]
  - MUSCLE SPASMS [None]
  - MYALGIA [None]
  - POSTOPERATIVE WOUND INFECTION [None]
